FAERS Safety Report 4977634-9 (Version None)
Quarter: 2006Q2

REPORT INFORMATION
  Report Type: 
  Country: None (occurrence: None)
  Receive Date: 20060420
  Receipt Date: 20050823
  Transmission Date: 20061013
  Serious: No
  Sender: FDA-Public Use
  Company Number: US-GLAXOSMITHKLINE-A0571461A

PATIENT
  Age: 47 Year
  Sex: Male

DRUGS (3)
  1. ESKALITH [Suspect]
     Dosage: 600MG TWICE PER DAY
     Route: 048
     Dates: start: 19870101
  2. PROZAC [Concomitant]
  3. UNKNOWN MEDICATION [Concomitant]
     Indication: HIV INFECTION

REACTIONS (2)
  - DRUG INEFFECTIVE [None]
  - PHARMACEUTICAL PRODUCT COMPLAINT [None]
